FAERS Safety Report 4603813-6 (Version None)
Quarter: 2005Q1

REPORT INFORMATION
  Report Type: 
  Country: None (occurrence: None)
  Receive Date: 20050310
  Receipt Date: 20050121
  Transmission Date: 20050727
  Serious: Yes (Hospitalization, Disabling)
  Sender: FDA-Public Use
  Company Number: AU-MERCK-0502AUS00063

PATIENT
  Age: 52 Year
  Sex: Male

DRUGS (9)
  1. QUININE SULFATE [Concomitant]
     Route: 065
  2. NICORANDIL [Concomitant]
     Route: 065
  3. VIOXX [Suspect]
     Route: 048
     Dates: start: 19990101, end: 20040101
  4. FLUVASTATIN SODIUM [Concomitant]
     Route: 065
  5. ESOMEPRAZOLE MAGNESIUM [Concomitant]
     Route: 065
  6. ISOSORBIDE MONONITRATE [Concomitant]
     Route: 065
  7. CLOPIDOGREL BISULFATE [Concomitant]
     Route: 065
  8. AMLODIPINE BESYLATE [Concomitant]
     Route: 065
  9. ASPIRIN [Concomitant]
     Route: 065

REACTIONS (2)
  - CARDIAC DISORDER [None]
  - MYOCARDIAL INFARCTION [None]
